FAERS Safety Report 10899894 (Version 1)
Quarter: 2015Q1

REPORT INFORMATION
  Report Type: Spontaneous
  Country: CI (occurrence: CI)
  Receive Date: 20150310
  Receipt Date: 20150310
  Transmission Date: 20150721
  Serious: Yes (Other)
  Sender: FDA-Public Use
  Company Number: CI-GLAXOSMITHKLINE-CI2015GSK028520

PATIENT
  Age: 30 Year
  Sex: Female

DRUGS (1)
  1. ZINNAT [Suspect]
     Active Substance: CEFUROXIME AXETIL
     Indication: ANGINA PECTORIS

REACTIONS (1)
  - Angina pectoris [Recovered/Resolved]
